FAERS Safety Report 22393304 (Version 1)
Quarter: 2023Q2

REPORT INFORMATION
  Report Type: Spontaneous
  Country: US (occurrence: None)
  Receive Date: 20230531
  Receipt Date: 20230531
  Transmission Date: 20230722
  Serious: Yes (Hospitalization)
  Sender: FDA-Public Use
  Company Number: None

PATIENT
  Sex: Female

DRUGS (1)
  1. PLEGRIDY [Suspect]
     Active Substance: PEGINTERFERON BETA-1A
     Indication: Multiple sclerosis
     Dosage: 125MG EVERY 14 DAYS SUBCUTANEOUS?
     Route: 058
     Dates: start: 20210212

REACTIONS (3)
  - Colitis [None]
  - Lung neoplasm malignant [None]
  - Hepatic cancer [None]
